FAERS Safety Report 16093884 (Version 1)
Quarter: 2019Q1

REPORT INFORMATION
  Report Type: Spontaneous
  Country: US (occurrence: US)
  Receive Date: 20190225
  Receipt Date: 20190225
  Transmission Date: 20190418
  Serious: Yes (Other)
  Sender: FDA-Public Use
  Company Number: US-JNJFOC-20190223840

PATIENT
  Age: 35 Year
  Sex: Male
  Weight: 95.26 kg

DRUGS (1)
  1. TYLENOL COLD PLUS FLU SEVERE [Suspect]
     Active Substance: ACETAMINOPHEN\DEXTROMETHORPHAN HYDROBROMIDE\GUAIFENESIN\PHENYLEPHRINE HYDROCHLORIDE
     Indication: SINUS DISORDER
     Route: 048
     Dates: start: 20190212, end: 20190214

REACTIONS (3)
  - Lymphadenopathy [Not Recovered/Not Resolved]
  - Inappropriate schedule of product administration [Unknown]
  - Hypersensitivity [Not Recovered/Not Resolved]

NARRATIVE: CASE EVENT DATE: 20190212
